FAERS Safety Report 11813812 (Version 1)
Quarter: 2015Q4

REPORT INFORMATION
  Report Type: Spontaneous
  Country: US (occurrence: None)
  Receive Date: 20151208
  Receipt Date: 20151208
  Transmission Date: 20160305
  Serious: Yes (Hospitalization)
  Sender: FDA-Public Use
  Company Number: None

PATIENT
  Age: 87 Year
  Sex: Female
  Weight: 72.6 kg

DRUGS (14)
  1. ARICEPT [Concomitant]
     Active Substance: DONEPEZIL HYDROCHLORIDE
  2. NORCO [Suspect]
     Active Substance: ACETAMINOPHEN\HYDROCODONE BITARTRATE
     Indication: BACK PAIN
     Dosage: 5MG/325MG 7 PO
     Route: 048
  3. AMLODIPINE [Concomitant]
     Active Substance: AMLODIPINE BESYLATE
  4. DICLOFENAC [Concomitant]
     Active Substance: DICLOFENAC
  5. CLARITIN [Concomitant]
     Active Substance: LORATADINE
  6. ZOLOFT [Concomitant]
     Active Substance: SERTRALINE HYDROCHLORIDE
  7. APRESOLINE HYDROCHLORIDE [Concomitant]
     Active Substance: HYDRALAZINE HYDROCHLORIDE
  8. MACROBID [Concomitant]
     Active Substance: NITROFURANTOIN\NITROFURANTOIN MONOHYDRATE
  9. BACLOFEN. [Concomitant]
     Active Substance: BACLOFEN
  10. MVI [Concomitant]
     Active Substance: VITAMINS
  11. FE [Concomitant]
     Active Substance: IRON
  12. APAP [Concomitant]
     Active Substance: ACETAMINOPHEN
  13. LEVOTHROID [Concomitant]
     Active Substance: LEVOTHYROXINE SODIUM
  14. SENNA [Concomitant]
     Active Substance: SENNA LEAF\SENNOSIDES\SENNOSIDES A AND B

REACTIONS (1)
  - Encephalopathy [None]

NARRATIVE: CASE EVENT DATE: 20150410
